FAERS Safety Report 7272470-5 (Version None)
Quarter: 2011Q1

REPORT INFORMATION
  Report Type: 
  Country: None (occurrence: None)
  Receive Date: 20110203
  Receipt Date: 20110201
  Transmission Date: 20110831
  Serious: Yes (Other)
  Sender: FDA-Public Use
  Company Number: JP-ROCHE-747621

PATIENT
  Age: 76 Year
  Sex: Male

DRUGS (1)
  1. CEFTRIAXONE SODIUM [Suspect]
     Indication: SEPSIS
     Dosage: DURATION OF THERAPY: 6 DAYS
     Route: 065

REACTIONS (2)
  - CHOREOATHETOSIS [None]
  - LOSS OF CONSCIOUSNESS [None]
